FAERS Safety Report 20430278 (Version 1)
Quarter: 2022Q1

REPORT INFORMATION
  Report Type: Report from Study
  Country: US (occurrence: US)
  Receive Date: 20220204
  Receipt Date: 20220204
  Transmission Date: 20220423
  Serious: Yes (Hospitalization, Other)
  Sender: FDA-Public Use
  Company Number: 2020IN004085

PATIENT

DRUGS (8)
  1. PEGASPARGASE [Suspect]
     Active Substance: PEGASPARGASE
     Indication: Acute lymphocytic leukaemia
     Dosage: 300 IU, ONE DOSE ON DAY 15
     Route: 042
     Dates: start: 20200423, end: 20200423
  2. PEGASPARGASE [Suspect]
     Active Substance: PEGASPARGASE
     Dosage: 2500 IU/M2 ONE DOSE
     Route: 042
     Dates: start: 20200505, end: 20200505
  3. TN UNSPECIFIED [Concomitant]
     Indication: Acute lymphocytic leukaemia
     Dosage: 100 MG, BID DAYS 1-14, D29-32
     Route: 048
     Dates: start: 20200409
  4. TN UNSPECIFIED [Concomitant]
     Indication: Acute lymphocytic leukaemia
     Dosage: 15 MG, EVERY 1 WEEK ON DAYS 1,8,15,22
     Route: 037
     Dates: start: 20200409
  5. TN UNSPECIFIED [Concomitant]
     Indication: Acute lymphocytic leukaemia
     Dosage: 2 MG, EVERY 1 WEEK DAYS 15,22,43,50
     Route: 042
     Dates: start: 20200423
  6. TN UNSPECIFIED [Concomitant]
     Indication: Acute lymphocytic leukaemia
     Dosage: 2400 MG, ON DAY 1, DAY 29
     Route: 042
     Dates: start: 20200409
  7. TN UNSPECIFIED [Concomitant]
     Indication: Acute lymphocytic leukaemia
     Dosage: 180 MG QD, ON DAYS 1-4, 8-11, 29-32
     Route: 042
     Dates: start: 20200409
  8. TN UNSPECIFIED [Concomitant]
     Indication: Acute lymphocytic leukaemia
     Dosage: 150 MG, QD ON DAYS 1-14, 29-32
     Route: 048
     Dates: start: 20200409

REACTIONS (3)
  - Toxicity to various agents [Recovered/Resolved]
  - Hypersensitivity [Recovered/Resolved]
  - Rash [Recovered/Resolved]

NARRATIVE: CASE EVENT DATE: 20200423
